FAERS Safety Report 6017563-5 (Version None)
Quarter: 2008Q4

REPORT INFORMATION
  Report Type: 
  Country: None (occurrence: None)
  Receive Date: 20081223
  Receipt Date: 20081215
  Transmission Date: 20090506
  Serious: Yes (Hospitalization, Other)
  Sender: FDA-Public Use
  Company Number: US-AMGEN-QUU324095

PATIENT
  Sex: Female

DRUGS (3)
  1. ENBREL [Suspect]
     Indication: PSORIASIS
     Route: 058
     Dates: start: 20001101
  2. ENBREL [Suspect]
     Indication: PSORIATIC ARTHROPATHY
  3. METHOTREXATE [Concomitant]
     Route: 058
     Dates: start: 20001101

REACTIONS (10)
  - ALOPECIA [None]
  - CORONARY ARTERY DISEASE [None]
  - CORONARY ARTERY OCCLUSION [None]
  - FATIGUE [None]
  - INFUSION SITE INFECTION [None]
  - MALAISE [None]
  - MEMORY IMPAIRMENT [None]
  - POST PROCEDURAL INFECTION [None]
  - PSORIASIS [None]
  - PULMONARY EMBOLISM [None]
